FAERS Safety Report 4622192-1 (Version None)
Quarter: 2005Q1

REPORT INFORMATION
  Report Type: 
  Country: None (occurrence: None)
  Receive Date: 20050324
  Receipt Date: 20050324
  Transmission Date: 20050727
  Serious: No
  Sender: FDA-Public Use
  Company Number: None

PATIENT
  Sex: Female
  Weight: 92 kg

DRUGS (4)
  1. ALL-TRANS RETINOIC ACID [Suspect]
     Dosage: 22.5 MG/M2 PO BID Q12HR STARTING ON DAY 1, FOR A MAXIMUM OF 90 DAYS
     Route: 048
     Dates: start: 20040930
  2. DAUNOMYCIN [Suspect]
     Dosage: 50 MG/M2 IV BOLUS OVER 5-10 MIN QD ON DAYS 3-6
     Route: 042
  3. CYTARABINE [Suspect]
     Dosage: 200 MG/M2/DAY CIV FOR 7 DAYS STARTING ON DAY 3
     Route: 042
  4. ATRA [Suspect]
     Dosage: ALONE MAINTENANCE, STARTS 2-4 WEEKS AFTER ANC RECOVERY, DURATION = 1 YEAR

REACTIONS (4)
  - CARDIOMEGALY [None]
  - DYSPNOEA [None]
  - PERICARDIAL EFFUSION [None]
  - SWELLING FACE [None]
